FAERS Safety Report 14962882 (Version 1)
Quarter: 2018Q2

REPORT INFORMATION
  Report Type: Spontaneous
  Country: US (occurrence: US)
  Receive Date: 20180601
  Receipt Date: 20180601
  Transmission Date: 20180711
  Serious: Yes (Other)
  Sender: FDA-Public Use
  Company Number: PHEH2018US020979

PATIENT
  Sex: Male
  Weight: 122.4 kg

DRUGS (6)
  1. ORENITRAM [Suspect]
     Active Substance: TREPROSTINIL
     Dosage: UNK (0.125MG, 1 MG AND 2.5 MG)
     Route: 048
     Dates: start: 20170815
  2. ORENITRAM [Suspect]
     Active Substance: TREPROSTINIL
     Indication: PULMONARY ARTERIAL HYPERTENSION
     Dosage: UNK (0.125MG, 1 MG AND 2.5 MG)
     Route: 048
     Dates: start: 20170815
  3. ADCIRCA [Concomitant]
     Active Substance: TADALAFIL
     Indication: PRODUCT USED FOR UNKNOWN INDICATION
     Route: 065
  4. TACROLIMUS. [Suspect]
     Active Substance: TACROLIMUS
     Indication: EYELID SKIN DRYNESS
     Route: 065
  5. ORENITRAM [Suspect]
     Active Substance: TREPROSTINIL
     Dosage: UNK (0.125MG, 1 MG AND 2.5 MG)
     Route: 048
     Dates: start: 20170815
  6. ORENITRAM [Suspect]
     Active Substance: TREPROSTINIL
     Dosage: 3.125 MG, TID
     Route: 048

REACTIONS (2)
  - Eyelid skin dryness [Unknown]
  - Application site pain [Unknown]
